FAERS Safety Report 8779567 (Version 3)
Quarter: 2012Q4

REPORT INFORMATION
  Report Type: 
  Country: JP (occurrence: JP)
  Receive Date: 20120912
  Receipt Date: 20121015
  Transmission Date: 20130627
  Serious: Yes (Death)
  Sender: FDA-Public Use
  Company Number: JP-AMGEN-JPNSP2012057011

PATIENT
  Age: 57 Year
  Sex: Female
  Weight: 54 kg

DRUGS (23)
  1. RANMARK [Suspect]
     Indication: METASTASES TO BONE
     Dosage: 120 mg, one time dose
     Route: 058
     Dates: start: 20120712
  2. BEVACIZUMAB (GENETICAL RECOMBINATION) [Suspect]
     Indication: BREAST CANCER RECURRENT
     Dosage: UNK UNK, UNK
     Route: 041
     Dates: start: 20120418, end: 20120711
  3. AVASTIN [Suspect]
     Indication: BREAST CANCER RECURRENT
     Dosage: single dose:540-560mg
     Route: 041
     Dates: start: 20120418, end: 20120711
  4. PACLITAXEL [Concomitant]
     Dosage: UNK UNK, UNK
     Route: 065
     Dates: end: 20120711
  5. BLOPRESS [Concomitant]
     Indication: HYPERTENSION
     Route: 048
     Dates: start: 20120523
  6. AMLODIPIN [Concomitant]
     Dosage: UNK UNK, UNK
     Route: 065
     Dates: end: 20120808
  7. ALFAROL [Concomitant]
     Indication: PRODUCT USED FOR UNKNOWN INDICATION
     Route: 048
     Dates: start: 20120712
  8. ASPARA-CA [Concomitant]
     Dosage: 6 DF, qd
     Route: 048
     Dates: start: 20120712
  9. CALCIUM L-ASPARTATE [Concomitant]
     Indication: PRODUCT USED FOR UNKNOWN INDICATION
     Route: 048
     Dates: start: 20120712
  10. FEMARA [Concomitant]
     Indication: BREAST CANCER
     Route: 048
     Dates: start: 20120725
  11. BUP-4 [Concomitant]
     Indication: DYSURIA
     Route: 048
     Dates: start: 20100310
  12. AMOXAN [Concomitant]
     Indication: DEPRESSION
     Route: 048
     Dates: start: 20100310
  13. SISAAL [Concomitant]
     Indication: INTERSTITIAL LUNG DISEASE
     Route: 048
     Dates: start: 20120725
  14. SISAAL [Concomitant]
     Indication: INTERSTITIAL LUNG DISEASE
  15. FLUVOXAMINE [Concomitant]
     Indication: DEPRESSION
     Route: 048
     Dates: start: 20110717
  16. CINAL [Concomitant]
     Dosage: Unknown
     Route: 065
  17. EPEL [Concomitant]
     Dosage: Unknown
     Route: 065
  18. OXYCONTIN [Concomitant]
     Dosage: Unknown
     Route: 065
  19. TAIPROTON [Concomitant]
     Dosage: Unknown
     Route: 065
  20. VEMAS(DIOCTYL SODIUM SULFOSUCCINATE/CASANTHRANOL) [Concomitant]
     Dosage: Unknown
     Route: 065
  21. RILYFTER [Concomitant]
     Dosage: Unknown
     Route: 065
  22. LEDOLPER [Concomitant]
     Dosage: Unknown
     Route: 065
  23. MYSLEE [Concomitant]
     Dosage: Unknown
     Route: 065

REACTIONS (8)
  - Altered state of consciousness [Fatal]
  - Convulsion [Fatal]
  - Hypocalcaemia [None]
  - Headache [None]
  - Cerebrovascular disorder [None]
  - Pulse absent [None]
  - Respiratory arrest [None]
  - Cardiac arrest [None]
